FAERS Safety Report 13532264 (Version 1)
Quarter: 2017Q2

REPORT INFORMATION
  Report Type: Spontaneous
  Country: US (occurrence: US)
  Receive Date: 20170510
  Receipt Date: 20170510
  Transmission Date: 20170830
  Serious: Yes (Hospitalization, Other)
  Sender: FDA-Public Use
  Company Number: US-PFIZER INC-2017199480

PATIENT
  Age: 70 Year
  Sex: Female

DRUGS (1)
  1. AMLODIPINE BESILATE [Suspect]
     Active Substance: AMLODIPINE BESYLATE
     Dosage: UNK

REACTIONS (5)
  - Nausea [Recovered/Resolved]
  - Concussion [Unknown]
  - Dizziness [Recovering/Resolving]
  - Loss of consciousness [Unknown]
  - Spinal fracture [Unknown]

NARRATIVE: CASE EVENT DATE: 201411
